FAERS Safety Report 22327342 (Version 5)
Quarter: 2025Q2

REPORT INFORMATION
  Report Type: Other
  Country: US (occurrence: US)
  Receive Date: 20230516
  Receipt Date: 20250529
  Transmission Date: 20250716
  Serious: Yes (Hospitalization)
  Sender: GLENMARK
  Company Number: US-GLENMARK PHARMACEUTICALS-2023GMK081769

PATIENT

DRUGS (4)
  1. OLMESARTAN MEDOXOMIL [Suspect]
     Active Substance: OLMESARTAN MEDOXOMIL
     Indication: Hypertension
     Dosage: 40 MILLIGRAM, OD
     Route: 048
     Dates: start: 2018
  2. OLMESARTAN MEDOXOMIL [Suspect]
     Active Substance: OLMESARTAN MEDOXOMIL
     Dosage: 20 MILLIGRAM, BID (TAKES 20 MG IN THE MORNING AND TAKES 20 MG IN THE EVENING. SHE CUTS THE TABLET IN
     Route: 048
     Dates: start: 20230429
  3. OLMESARTAN MEDOXOMIL [Suspect]
     Active Substance: OLMESARTAN MEDOXOMIL
     Route: 065
  4. GUANFACINE [Concomitant]
     Active Substance: GUANFACINE
     Indication: Hypertension
     Route: 048

REACTIONS (8)
  - Blood pressure increased [Not Recovered/Not Resolved]
  - Pain in extremity [Unknown]
  - Cardiac disorder [Unknown]
  - Malaise [Unknown]
  - Wrong technique in product usage process [Unknown]
  - Product dispensing error [Unknown]
  - Drug ineffective [Unknown]
  - Product quality issue [Unknown]

NARRATIVE: CASE EVENT DATE: 20230429
